FAERS Safety Report 9847539 (Version 1)
Quarter: 2014Q1

REPORT INFORMATION
  Report Type: Spontaneous
  Country: CA (occurrence: CA)
  Receive Date: 20140128
  Receipt Date: 20140128
  Transmission Date: 20141002
  Serious: Yes (Other)
  Sender: FDA-Public Use
  Company Number: CA-ROCHE-1336928

PATIENT
  Sex: Female

DRUGS (5)
  1. HERCEPTIN [Suspect]
     Indication: PRODUCT USED FOR UNKNOWN INDICATION
     Route: 042
     Dates: start: 201010, end: 201110
  2. HERCEPTIN [Suspect]
     Route: 042
     Dates: start: 201302
  3. TRANDOLAPRIL [Concomitant]
  4. BISOPROLOL [Concomitant]
  5. MIRTAZAPINE [Concomitant]

REACTIONS (4)
  - Metastases to bone [Unknown]
  - Metastases to liver [Unknown]
  - Hypertension [Unknown]
  - Tachycardia [Unknown]
